FAERS Safety Report 8258941-3 (Version None)
Quarter: 2012Q2

REPORT INFORMATION
  Report Type: 
  Country: None (occurrence: None)
  Receive Date: 20120403
  Receipt Date: 20120403
  Transmission Date: 20120825
  Serious: Yes (Hospitalization)
  Sender: FDA-Public Use
  Company Number: None

PATIENT
  Age: 64 Year
  Sex: Male
  Weight: 102.5 kg

DRUGS (1)
  1. METFORMIN HCL [Suspect]
     Dosage: 1000 MG EVERY DAY PO
     Route: 048
     Dates: start: 20110831, end: 20111212

REACTIONS (2)
  - BLOOD LACTIC ACID INCREASED [None]
  - KETOSIS [None]
